FAERS Safety Report 13354551 (Version 4)
Quarter: 2017Q4

REPORT INFORMATION
  Report Type: Spontaneous
  Country: FR (occurrence: FR)
  Receive Date: 20170321
  Receipt Date: 20171215
  Transmission Date: 20180320
  Serious: Yes (Other)
  Sender: FDA-Public Use
  Company Number: FR-009507513-1702FRA007103

PATIENT
  Age: 78 Year
  Sex: Male
  Weight: 87 kg

DRUGS (1)
  1. LIPTRUZET [Suspect]
     Active Substance: ATORVASTATIN CALCIUM\EZETIMIBE
     Indication: TYPE IIA HYPERLIPIDAEMIA
     Dosage: 1 TABLET, QD
     Route: 048
     Dates: start: 20160605, end: 20170126

REACTIONS (8)
  - Blood creatine phosphokinase increased [Recovered/Resolved]
  - Autoimmune hypothyroidism [Recovered/Resolved with Sequelae]
  - Generalised oedema [Recovered/Resolved]
  - Myalgia [Recovered/Resolved]
  - Tinnitus [Recovered/Resolved]
  - Transaminases increased [Recovered/Resolved]
  - Muscle spasms [Recovered/Resolved]
  - Ageusia [Recovered/Resolved]

NARRATIVE: CASE EVENT DATE: 2017
